FAERS Safety Report 21746081 (Version 2)
Quarter: 2023Q1

REPORT INFORMATION
  Report Type: Report from Study
  Country: BR (occurrence: BR)
  Receive Date: 20221219
  Receipt Date: 20230321
  Transmission Date: 20230417
  Serious: Yes (Other)
  Sender: FDA-Public Use
  Company Number: BR-CELLTRION INC.-2022BR021119

PATIENT

DRUGS (2)
  1. INFLIXIMAB [Suspect]
     Active Substance: INFLIXIMAB
     Indication: Crohn^s disease
     Dosage: STARTED MAY OR JUNE 2022, 3 AMPOULES EVERY 8 WEEKS
     Route: 042
  2. AZATHIOPRINE [Concomitant]
     Active Substance: AZATHIOPRINE
     Indication: Crohn^s disease
     Dosage: STARTED 3 YEARS AGO, 2 CAPSULES A DAY, 50 MILLIGRAM
     Route: 048

REACTIONS (2)
  - Acarodermatitis [Unknown]
  - Intentional dose omission [Unknown]
